FAERS Safety Report 4689797-3 (Version None)
Quarter: 2005Q2

REPORT INFORMATION
  Report Type: 
  Country: None (occurrence: None)
  Receive Date: 20050608
  Receipt Date: 20050408
  Transmission Date: 20051028
  Serious: No
  Sender: FDA-Public Use
  Company Number: 2005-BP-05943BP

PATIENT
  Age: 67 Year
  Sex: Female

DRUGS (12)
  1. SPIRIVA [Suspect]
     Indication: CHRONIC OBSTRUCTIVE PULMONARY DISEASE
     Dosage: 18 MCG (18 MCG), IH
     Route: 055
     Dates: start: 20050323
  2. SPIRIVA [Suspect]
  3. ACETYLSALICYLIC ACID SRT [Suspect]
     Dosage: (81 MG)
     Dates: end: 20050301
  4. LEXAPRO [Concomitant]
  5. ATIVAN [Concomitant]
  6. ACCUPRIL [Concomitant]
  7. HYDROCHLOROTHIAZIDE [Concomitant]
  8. LEVOXYL [Concomitant]
  9. POTASSIUM ACETATE [Concomitant]
  10. VITAMIN B6 [Concomitant]
  11. VITAMIN C(ASCORBIC ACID) [Concomitant]
  12. VITAMIN B12(CYANCOBALAMIN) [Concomitant]

REACTIONS (3)
  - BLOOD PRESSURE DECREASED [None]
  - CONTUSION [None]
  - EPISTAXIS [None]
